FAERS Safety Report 4954068-4 (Version None)
Quarter: 2006Q1

REPORT INFORMATION
  Report Type: 
  Country: None (occurrence: None)
  Receive Date: 20060321
  Receipt Date: 20060309
  Transmission Date: 20060701
  Serious: Yes (Hospitalization)
  Sender: FDA-Public Use
  Company Number: 2005-127638-NL

PATIENT
  Age: 32 Year
  Sex: Female

DRUGS (4)
  1. FOLLITROPIN BETA [Suspect]
     Indication: IN VITRO FERTILISATION
     Dosage: 150 IU
     Route: 058
     Dates: start: 20010317, end: 20010327
  2. CHORIONIC GONADOTROPIN [Suspect]
     Indication: IN VITRO FERTILISATION
     Dosage: 10000 IU
  3. PROGESTERONE [Suspect]
     Indication: IN VITRO FERTILISATION
     Dosage: 600 MG
     Route: 067
  4. GONADORELIN INJ [Concomitant]

REACTIONS (3)
  - ECTOPIC PREGNANCY [None]
  - SALPINGITIS [None]
  - VAGINAL HAEMORRHAGE [None]
